FAERS Safety Report 18372963 (Version 7)
Quarter: 2021Q4

REPORT INFORMATION
  Report Type: Spontaneous
  Country: DE (occurrence: DE)
  Receive Date: 20201012
  Receipt Date: 20211021
  Transmission Date: 20220303
  Serious: Yes (Death, Life-Threatening, Hospitalization, Other)
  Sender: FDA-Public Use
  Company Number: NVSC2020DE273864

PATIENT
  Sex: Female

DRUGS (4)
  1. KYMRIAH [Suspect]
     Active Substance: TISAGENLECLEUCEL
     Indication: Diffuse large B-cell lymphoma
     Dosage: UNK, ONCE/SINGLE
     Route: 041
     Dates: start: 20200930, end: 20200930
  2. PREGABALIN [Concomitant]
     Active Substance: PREGABALIN
     Indication: Product used for unknown indication
     Dosage: 50 MG, BID (2X 50 MG PER DAY)
     Route: 065
  3. HYDROMORPHONE [Concomitant]
     Active Substance: HYDROMORPHONE
     Indication: Product used for unknown indication
     Dosage: 14 MG, QD (14 MG PER DAY)
     Route: 065
  4. LEVETIRACETAM [Concomitant]
     Active Substance: LEVETIRACETAM
     Indication: Product used for unknown indication
     Dosage: 500 MG, BID (2X 500 MG PER DAY)
     Route: 065

REACTIONS (25)
  - Cytokine release syndrome [Fatal]
  - Pyrexia [Fatal]
  - Hypotension [Fatal]
  - Hypoxia [Fatal]
  - Immune effector cell-associated neurotoxicity syndrome [Fatal]
  - Memory impairment [Fatal]
  - Lactic acidosis [Fatal]
  - Respiratory failure [Fatal]
  - Shock [Fatal]
  - Abdominal compartment syndrome [Unknown]
  - Haemophagocytic lymphohistiocytosis [Unknown]
  - Acute kidney injury [Unknown]
  - Intestinal ischaemia [Unknown]
  - Neurotoxicity [Unknown]
  - Abdominal neoplasm [Unknown]
  - Haemodynamic instability [Unknown]
  - Tachypnoea [Unknown]
  - Abdominal discomfort [Unknown]
  - Sinus tachycardia [Unknown]
  - Gastrointestinal sounds abnormal [Unknown]
  - Intra-abdominal fluid collection [Unknown]
  - Hepatic displacement [Unknown]
  - Gastrointestinal wall thickening [Unknown]
  - Chills [Unknown]
  - Dyspnoea [Unknown]

NARRATIVE: CASE EVENT DATE: 20201001
